FAERS Safety Report 23787501 (Version 1)
Quarter: 2024Q2

REPORT INFORMATION
  Report Type: Report from Study
  Country: FR (occurrence: FR)
  Receive Date: 20240426
  Receipt Date: 20240426
  Transmission Date: 20240715
  Serious: Yes (Other)
  Sender: FDA-Public Use
  Company Number: None

PATIENT
  Age: 79 Year
  Sex: Male

DRUGS (12)
  1. ENFORTUMAB VEDOTIN-EJFV [Suspect]
     Active Substance: ENFORTUMAB VEDOTIN-EJFV
     Indication: Bladder transitional cell carcinoma
     Dosage: 96 MG, CYCLIC (1.25 MG/M2 C1D1)
     Route: 042
     Dates: start: 20231122, end: 20231122
  2. ENFORTUMAB VEDOTIN-EJFV [Suspect]
     Active Substance: ENFORTUMAB VEDOTIN-EJFV
     Dosage: 96 MG, CYCLIC (1.25 MG/M2 C1D8)
     Route: 042
     Dates: start: 20231129, end: 20231129
  3. ENFORTUMAB VEDOTIN-EJFV [Suspect]
     Active Substance: ENFORTUMAB VEDOTIN-EJFV
     Dosage: 96 MG, CYCLIC (1.25 MG/M2 C1D15)
     Route: 042
     Dates: start: 20231206, end: 20231206
  4. ENFORTUMAB VEDOTIN-EJFV [Suspect]
     Active Substance: ENFORTUMAB VEDOTIN-EJFV
     Dosage: 74 MG, CYCLIC (1.0 MG/M2 C2D1)
     Route: 042
     Dates: start: 20231227, end: 20231227
  5. ENFORTUMAB VEDOTIN-EJFV [Suspect]
     Active Substance: ENFORTUMAB VEDOTIN-EJFV
     Dosage: 74 MG, CYCLIC (1.0 MG/M2 C2D8)
     Route: 042
     Dates: start: 20240103, end: 20240103
  6. ENFORTUMAB VEDOTIN-EJFV [Suspect]
     Active Substance: ENFORTUMAB VEDOTIN-EJFV
     Dosage: 74 MG, CYCLIC (1.0 MG/M? C3J1)
     Route: 042
     Dates: start: 20240117, end: 20240117
  7. ENFORTUMAB VEDOTIN-EJFV [Suspect]
     Active Substance: ENFORTUMAB VEDOTIN-EJFV
     Dosage: 74 MG, CYCLIC (1.0 MG/M2 C3D8)
     Route: 042
     Dates: start: 20240124, end: 20240124
  8. ENFORTUMAB VEDOTIN-EJFV [Suspect]
     Active Substance: ENFORTUMAB VEDOTIN-EJFV
     Dosage: 74 MG, CYCLIC (1.0 MG/M2 C3D15)
     Route: 042
     Dates: start: 20240131, end: 20240131
  9. ENFORTUMAB VEDOTIN-EJFV [Suspect]
     Active Substance: ENFORTUMAB VEDOTIN-EJFV
     Dosage: 52 MG, CYCLIC (0.75 MG/M2 C4D1)
     Route: 042
     Dates: start: 20240221, end: 20240221
  10. ENFORTUMAB VEDOTIN-EJFV [Suspect]
     Active Substance: ENFORTUMAB VEDOTIN-EJFV
     Dosage: 52 MG, CYCLIC (0.75 MG/M2 C4D8)
     Route: 042
     Dates: start: 20240228, end: 20240228
  11. ONDANSETRON [Concomitant]
     Active Substance: ONDANSETRON
     Indication: Prophylaxis of nausea and vomiting
     Route: 048
     Dates: start: 20231122
  12. APREPITANT [Concomitant]
     Active Substance: APREPITANT
     Indication: Prophylaxis of nausea and vomiting
     Dosage: UNK UNK, CYCLIC (125 MG D1 80 MG D2D3)
     Route: 048
     Dates: start: 20231122

REACTIONS (4)
  - Scab [Recovering/Resolving]
  - Erythema [Recovering/Resolving]
  - Xerosis [Recovering/Resolving]
  - Weight decreased [Recovering/Resolving]

NARRATIVE: CASE EVENT DATE: 20231207
